FAERS Safety Report 21083229 (Version 1)
Quarter: 2022Q3

REPORT INFORMATION
  Report Type: Spontaneous
  Country: US (occurrence: None)
  Receive Date: 20220714
  Receipt Date: 20220714
  Transmission Date: 20221027
  Serious: Yes (Hospitalization)
  Sender: FDA-Public Use
  Company Number: None

PATIENT
  Age: 62 Year
  Sex: Male
  Weight: 85 kg

DRUGS (1)
  1. ENOXAPARIN [Suspect]
     Active Substance: ENOXAPARIN
     Indication: Pulmonary embolism
     Dates: start: 20220223

REACTIONS (6)
  - Haemoptysis [None]
  - Haemorrhage [None]
  - Nausea [None]
  - Vomiting [None]
  - Treatment failure [None]
  - Gastric haemorrhage [None]

NARRATIVE: CASE EVENT DATE: 20220608
